FAERS Safety Report 19654299 (Version 1)
Quarter: 2021Q3

REPORT INFORMATION
  Report Type: Spontaneous
  Country: US (occurrence: US)
  Receive Date: 20210804
  Receipt Date: 20210804
  Transmission Date: 20211014
  Serious: Yes (Hospitalization)
  Sender: FDA-Public Use
  Company Number: US-STRIDES ARCOLAB LIMITED-2021SP005747

PATIENT
  Age: 5 Decade
  Sex: Female

DRUGS (19)
  1. DIPHENHYDRAMINE. [Suspect]
     Active Substance: DIPHENHYDRAMINE
     Indication: PRODUCT USED FOR UNKNOWN INDICATION
     Dosage: UNK
     Route: 065
  2. DINUTUXIMAB [Concomitant]
     Active Substance: DINUTUXIMAB
     Indication: NEUROBLASTOMA
     Dosage: 17.5 MILLIGRAM/SQ. METER
     Route: 042
     Dates: start: 20190507, end: 20190510
  3. DINUTUXIMAB [Concomitant]
     Active Substance: DINUTUXIMAB
     Dosage: 17.5 MILLIGRAM/SQ. METER, 3 CYCLES, DAILY
     Route: 042
     Dates: start: 20190605, end: 20190608
  4. CISPLATIN. [Concomitant]
     Active Substance: CISPLATIN
     Indication: NEUROBLASTOMA
     Dosage: UNK, 1 CYCLE
     Route: 065
     Dates: start: 201812
  5. IRINOTECAN [Concomitant]
     Active Substance: IRINOTECAN
     Dosage: 50 MG/M2 OVER 90 MIN FROM DAYS 1?5, CYCLE?2
     Route: 042
     Dates: start: 20190506, end: 20190510
  6. DINUTUXIMAB [Concomitant]
     Active Substance: DINUTUXIMAB
     Dosage: UNK
     Route: 042
     Dates: start: 20190722, end: 20190726
  7. ETOPOSIDE. [Concomitant]
     Active Substance: ETOPOSIDE
     Indication: NEUROBLASTOMA
     Dosage: UNK, 1 CYCLE
     Route: 065
     Dates: start: 201812
  8. IRINOTECAN [Concomitant]
     Active Substance: IRINOTECAN
     Indication: NEUROBLASTOMA
     Dosage: 50 MG/M2 OVER 90 MIN FROM DAYS 1?5, CYCLE?1
     Route: 042
     Dates: start: 20190416, end: 20190420
  9. GABAPENTIN. [Suspect]
     Active Substance: GABAPENTIN
     Indication: NEURALGIA
  10. TOPOTECAN [Concomitant]
     Active Substance: TOPOTECAN HYDROCHLORIDE
     Indication: NEUROBLASTOMA
     Dosage: UNK, 2 CYCLES
     Route: 065
     Dates: start: 201812
  11. CYCLOPHOSPHAMIDE. [Concomitant]
     Active Substance: CYCLOPHOSPHAMIDE
     Indication: NEUROBLASTOMA
     Dosage: UNK, CYCLICAL, 2 CYCLES
     Route: 065
     Dates: start: 201812
  12. TEMOZOLAMIDE [Concomitant]
     Active Substance: TEMOZOLOMIDE
     Indication: NEUROBLASTOMA
     Dosage: 100 MILLIGRAM/SQ. METER, 1 CYCLE, DAILY
     Route: 048
     Dates: start: 20190416, end: 20190420
  13. TEMOZOLAMIDE [Concomitant]
     Active Substance: TEMOZOLOMIDE
     Dosage: 100 MILLIGRAM/SQ. METER
     Route: 048
     Dates: start: 20190722, end: 20190726
  14. IRINOTECAN [Concomitant]
     Active Substance: IRINOTECAN
     Dosage: 50 MILLIGRAM/SQ. METER, 3 CYCLICAL
     Route: 042
     Dates: start: 20190604, end: 20190608
  15. IRINOTECAN [Concomitant]
     Active Substance: IRINOTECAN
     Dosage: 50 MILLIGRAM/SQ. METER
     Route: 042
     Dates: start: 20190722, end: 20190726
  16. HYDROMORPHONE [Concomitant]
     Active Substance: HYDROMORPHONE
     Indication: PAIN
     Dosage: UNK
     Route: 042
     Dates: start: 2019
  17. TEMOZOLAMIDE [Concomitant]
     Active Substance: TEMOZOLOMIDE
     Dosage: 100 MILLIGRAM/SQ. METER, 2 CYCLE, DAILY
     Route: 048
     Dates: start: 20190506, end: 20190510
  18. GABAPENTIN. [Suspect]
     Active Substance: GABAPENTIN
     Indication: PAIN
     Dosage: UNK
     Route: 065
     Dates: start: 2019, end: 2019
  19. TEMOZOLAMIDE [Concomitant]
     Active Substance: TEMOZOLOMIDE
     Dosage: 100 MILLIGRAM/SQ. METER, CYCLE?3
     Route: 048
     Dates: start: 20190604, end: 20190608

REACTIONS (4)
  - Confusional state [Unknown]
  - Mental status changes [Unknown]
  - Respiratory depression [Unknown]
  - Sedation [Unknown]

NARRATIVE: CASE EVENT DATE: 2019
